FAERS Safety Report 18319670 (Version 1)
Quarter: 2020Q3

REPORT INFORMATION
  Report Type: Spontaneous
  Country: US (occurrence: US)
  Receive Date: 20200929
  Receipt Date: 20200929
  Transmission Date: 20201103
  Serious: Yes (Death, Hospitalization, Other)
  Sender: FDA-Public Use
  Company Number: US-HETERO-HET2020US01076

PATIENT
  Age: 74 Year
  Sex: Female

DRUGS (8)
  1. RANITIDINE. [Suspect]
     Active Substance: RANITIDINE
     Indication: INTENTIONAL OVERDOSE
     Route: 048
  2. OMEPRAZOLE. [Suspect]
     Active Substance: OMEPRAZOLE
     Indication: INTENTIONAL OVERDOSE
     Route: 048
  3. DILTIAZEM. [Suspect]
     Active Substance: DILTIAZEM
     Indication: INTENTIONAL OVERDOSE
     Route: 048
  4. FLUOXETINE [Suspect]
     Active Substance: FLUOXETINE HYDROCHLORIDE
     Indication: INTENTIONAL OVERDOSE
     Route: 048
  5. LISINOPRIL. [Suspect]
     Active Substance: LISINOPRIL
     Indication: INTENTIONAL OVERDOSE
     Route: 048
  6. PRAVASTATIN. [Suspect]
     Active Substance: PRAVASTATIN
     Indication: INTENTIONAL OVERDOSE
     Route: 048
  7. ASPIRIN                            /00002701/ [Suspect]
     Active Substance: ASPIRIN
     Indication: INTENTIONAL OVERDOSE
     Route: 048
  8. IBUPROFEN                          /00109205/ [Suspect]
     Active Substance: IBUPROFEN
     Indication: INTENTIONAL OVERDOSE
     Route: 048

REACTIONS (7)
  - Intentional overdose [Unknown]
  - Atrioventricular block second degree [Unknown]
  - Somnolence [Unknown]
  - Pulseless electrical activity [Unknown]
  - Atrioventricular block first degree [Unknown]
  - Death [Fatal]
  - Vomiting [Unknown]
